FAERS Safety Report 12385708 (Version 2)
Quarter: 2017Q1

REPORT INFORMATION
  Report Type: Report from Study
  Country: CA (occurrence: CA)
  Receive Date: 20160519
  Receipt Date: 20170125
  Transmission Date: 20170428
  Serious: Yes (Hospitalization)
  Sender: FDA-Public Use
  Company Number: CA-HLSUS-2016-CA-000137

PATIENT
  Sex: Male

DRUGS (25)
  1. CALCIUM ELEMENTAIRE/VITAMIN D [Concomitant]
     Dosage: 500 MG 2 TIMES PER DAY
  2. POLYETHYLENEGLYCOL [Concomitant]
     Dosage: 17 G PER DAY
  3. ACETAMINOPHEN. [Concomitant]
     Active Substance: ACETAMINOPHEN
     Dosage: 325 MG 4 TIMES PER DAY
     Route: 048
  4. LEVOTHYROXINE. [Concomitant]
     Active Substance: LEVOTHYROXINE
     Dosage: 50 MCG PER DAY
  5. CLOZARIL [Suspect]
     Active Substance: CLOZAPINE
     Route: 048
  6. MOMETASONE 0.1 % LOTION 75 ML [Concomitant]
  7. PRAVASTATIN. [Concomitant]
     Active Substance: PRAVASTATIN
     Dosage: 40 MG AT BEDTIME
  8. CARBOXYMETHYLCELLULOSE [Concomitant]
     Active Substance: CARBOXYMETHYLCELLULOSE
     Dosage: 1-2 DROPS IF NEEDED
  9. LANSOPRAZOLE. [Concomitant]
     Active Substance: LANSOPRAZOLE
     Dosage: 30 MG PO DAILY
     Route: 048
  10. LAMOTRIGINE. [Concomitant]
     Active Substance: LAMOTRIGINE
     Dosage: 25 MG 2 TIMES PER DAY
  11. SALBUTAMOL [Concomitant]
     Active Substance: ALBUTEROL
     Dosage: 4 TIMES PER DAY IF DYSPNEA
  12. MIDODRINE [Concomitant]
     Active Substance: MIDODRINE
  13. NITROGLYCERINE [Concomitant]
     Active Substance: NITROGLYCERIN
     Dosage: EACH5MINS IF RETROSTERNAL PAIN
     Route: 060
  14. SENNOSIDES. [Concomitant]
     Active Substance: SENNOSIDES
     Dosage: 8.6 MG 2 TIMES PER DAY
  15. TRIETHANOLAMINE SALICYLATE 10 % [Concomitant]
     Dosage: 4TIMEPERDA IFNEEDED AGAISTPAIN
  16. SILODOSINE [Concomitant]
     Active Substance: SILODOSIN
     Dosage: 4 MG PER DAY AT DINNER
  17. ACETYLSALICYLIC ACID [Concomitant]
     Active Substance: ASPIRIN
     Dosage: 80 MG PER DAY
  18. VENLAFAXINE XR [Concomitant]
     Active Substance: VENLAFAXINE HYDROCHLORIDE
     Dosage: 75 MG AT MORNING
  19. CITALOPRAM [Concomitant]
     Active Substance: CITALOPRAM HYDROBROMIDE
     Dosage: 20 MG AT BEDTIME
  20. OXAPAM [Concomitant]
     Dosage: 7.5 MG AT BEDTIME
  21. SPIRIVA [Concomitant]
     Active Substance: TIOTROPIUM BROMIDE MONOHYDRATE
     Dosage: 18 MCG 1 TIME PER DAY
  22. LOXAPINE. [Concomitant]
     Active Substance: LOXAPINE
     Dosage: EACH 6 HRS IF AGITATION
  23. LOPERAMIDE [Concomitant]
     Active Substance: LOPERAMIDE
     Dosage: IF DIARRHEA 2 PILLS PER DAY
  24. SODIUM DOCUSATE [Concomitant]
     Active Substance: DOCUSATE SODIUM
     Dosage: 200MGATBEDTIME IF CONSTIPATION
     Route: 048
  25. BISOPROLOL [Concomitant]
     Active Substance: BISOPROLOL
     Dosage: 5 MG AT MORNING

REACTIONS (2)
  - Pneumonia [Recovered/Resolved]
  - Pleural effusion [Recovered/Resolved]
